FAERS Safety Report 7744340-7 (Version None)
Quarter: 2011Q3

REPORT INFORMATION
  Report Type: 
  Country: None (occurrence: None)
  Receive Date: 20110825
  Receipt Date: 20110819
  Transmission Date: 20111222
  Serious: Yes (Life-Threatening, Hospitalization)
  Sender: FDA-Public Use
  Company Number: 2011SP039169

PATIENT
  Age: 79 Year
  Sex: Male

DRUGS (14)
  1. PRIMPERAN TAB [Suspect]
     Indication: NAUSEA
     Dosage: 1 DF;QD;IV 3 DF;QD
     Route: 042
     Dates: start: 20110610, end: 20110713
  2. PRIMPERAN TAB [Suspect]
     Indication: NAUSEA
     Dosage: 1 DF;QD;IV 3 DF;QD
     Route: 042
     Dates: start: 20110617
  3. DITROPAN [Concomitant]
  4. DEXTROSE [Concomitant]
  5. SPECIAFOLDINE [Concomitant]
  6. PANTOPRAZOLE [Concomitant]
  7. METHOTREXATE [Concomitant]
  8. ALENDRONATE SODIUM [Concomitant]
  9. NICARDIPINE HCL [Concomitant]
  10. ZOLPIDEM [Concomitant]
  11. MIRTAZAPINE [Suspect]
     Indication: DEPRESSIVE SYMPTOM
     Dosage: 15 MG;QD;PO
     Route: 048
     Dates: start: 20110629, end: 20110717
  12. PREDNISONE [Concomitant]
  13. DESLORATADINE [Concomitant]
  14. LOVENOX [Concomitant]

REACTIONS (12)
  - CARDIO-RESPIRATORY ARREST [None]
  - STAPHYLOCOCCAL SEPSIS [None]
  - DEPRESSION [None]
  - NAUSEA [None]
  - ENDOCARDITIS [None]
  - CLONUS [None]
  - RENAL FAILURE [None]
  - APPENDICITIS PERFORATED [None]
  - MALAISE [None]
  - ORTHOSTATIC HYPOTENSION [None]
  - EXTRADURAL ABSCESS [None]
  - EPILEPSY [None]
